FAERS Safety Report 8149503-7 (Version None)
Quarter: 2012Q1

REPORT INFORMATION
  Report Type: 
  Country: None (occurrence: None)
  Receive Date: 20120218
  Receipt Date: 20111024
  Transmission Date: 20120608
  Serious: No
  Sender: FDA-Public Use
  Company Number: US-ALLERGAN-1114026US

PATIENT
  Age: 63 Year
  Sex: Female

DRUGS (2)
  1. SUN BATH PROTECTIVE TANNING LOTION [Concomitant]
     Indication: PROPHYLAXIS AGAINST SOLAR RADIATION
     Dosage: UNK
  2. BOTOX COSMETIC [Suspect]
     Indication: SKIN WRINKLING
     Dosage: UNK
     Route: 030
     Dates: start: 20111004, end: 20111004

REACTIONS (1)
  - RASH [None]
